FAERS Safety Report 23235498 (Version 2)
Quarter: 2023Q4

REPORT INFORMATION
  Report Type: Spontaneous
  Country: HR (occurrence: HR)
  Receive Date: 20231128
  Receipt Date: 20231214
  Transmission Date: 20240110
  Serious: Yes (Other)
  Sender: FDA-Public Use
  Company Number: HR-002147023-NVSC2023HR226004

PATIENT
  Age: 8 Month
  Sex: Male
  Weight: 1.67 kg

DRUGS (10)
  1. PANTOPRAZOLE [Suspect]
     Active Substance: PANTOPRAZOLE
     Indication: Foetal exposure during pregnancy
     Dosage: UNK
     Route: 064
  2. ASPIRIN [Suspect]
     Active Substance: ASPIRIN
     Indication: Foetal exposure during pregnancy
     Dosage: 100 MG
     Route: 064
  3. VALGANCICLOVIR [Suspect]
     Active Substance: VALGANCICLOVIR
     Indication: Foetal exposure during pregnancy
     Dosage: 900 MG
     Route: 064
  4. EVEROLIMUS [Suspect]
     Active Substance: EVEROLIMUS
     Indication: Foetal exposure during pregnancy
     Dosage: 2 MG, 1X/DAY (QD)
     Route: 064
  5. FUROSEMIDE [Suspect]
     Active Substance: FUROSEMIDE
     Indication: Foetal exposure during pregnancy
     Dosage: MATERNAL EXPOSURE: UNK
     Route: 064
  6. PREDNISONE [Suspect]
     Active Substance: PREDNISONE
     Indication: Foetal exposure during pregnancy
     Dosage: 10 MG
     Route: 064
  7. DILTIAZEM [Suspect]
     Active Substance: DILTIAZEM
     Indication: Foetal exposure during pregnancy
     Dosage: 120 MG
     Route: 064
  8. SULFAMETHOXAZOLE AND TRIMETHOPRIM [Suspect]
     Active Substance: SULFAMETHOXAZOLE\TRIMETHOPRIM
     Indication: Foetal exposure during pregnancy
     Dosage: 960 MG
     Route: 064
  9. ATORVASTATIN [Suspect]
     Active Substance: ATORVASTATIN
     Indication: Foetal exposure during pregnancy
     Dosage: 40 MG
     Route: 064
  10. TACROLIMUS [Suspect]
     Active Substance: TACROLIMUS
     Indication: Foetal exposure during pregnancy
     Dosage: UNK
     Route: 064

REACTIONS (3)
  - Premature baby [Unknown]
  - Low birth weight baby [Unknown]
  - Foetal exposure during pregnancy [Unknown]
